FAERS Safety Report 15786134 (Version 1)
Quarter: 2019Q1

REPORT INFORMATION
  Report Type: Spontaneous
  Country: US (occurrence: US)
  Receive Date: 20190103
  Receipt Date: 20190103
  Transmission Date: 20190417
  Serious: No
  Sender: FDA-Public Use
  Company Number: US-SA-2019SA000420

PATIENT
  Age: 65 Year
  Sex: Female

DRUGS (1)
  1. ICY HOT MEDICATED, BACK [Suspect]
     Active Substance: MENTHOL
     Dosage: UNK
     Dates: start: 20181221

REACTIONS (2)
  - Contusion [Unknown]
  - Product quality issue [Unknown]

NARRATIVE: CASE EVENT DATE: 20181221
